FAERS Safety Report 8878953 (Version 2)
Quarter: 2012Q4

REPORT INFORMATION
  Report Type: 
  Country: IN (occurrence: IN)
  Receive Date: 20121026
  Receipt Date: 20121204
  Transmission Date: 20130627
  Serious: Yes (Other)
  Sender: FDA-Public Use
  Company Number: IN-ELI_LILLY_AND_COMPANY-IN201210004993

PATIENT
  Age: 55 Year
  Sex: Male

DRUGS (3)
  1. FORTEO [Suspect]
     Indication: OSTEOPOROSIS
     Dosage: 20 ug, qd
     Route: 058
     Dates: start: 201206, end: 201210
  2. CALCIUM +VIT D [Concomitant]
  3. CALCITONIN [Concomitant]

REACTIONS (2)
  - Plasma cell myeloma [Unknown]
  - Blood creatinine increased [Unknown]
